FAERS Safety Report 9931556 (Version 2)
Quarter: 2014Q1

REPORT INFORMATION
  Report Type: Report from Study
  Country: US (occurrence: US)
  Receive Date: 20140228
  Receipt Date: 20140302
  Transmission Date: 20141002
  Serious: Yes (Hospitalization, Other)
  Sender: FDA-Public Use
  Company Number: US-ROCHE-1357040

PATIENT
  Sex: Male

DRUGS (8)
  1. LUCENTIS [Suspect]
     Indication: MACULAR DEGENERATION
     Dosage: RIGHT EYE
     Route: 065
     Dates: start: 200308
  2. QUINAPRIL [Concomitant]
     Indication: HYPERTENSION
     Route: 048
  3. VERAPAMIL [Concomitant]
     Indication: BLOOD PRESSURE
     Route: 048
  4. MULTAQ [Concomitant]
     Route: 048
  5. HYDROXYCHLOROQUINE [Concomitant]
     Route: 048
  6. PREDNISONE [Concomitant]
     Route: 048
  7. WARFARIN [Concomitant]
     Indication: ANTICOAGULANT THERAPY
     Dosage: (STOPPED WHEN STARTED MULTAQ)
     Route: 065
  8. BABY ASPIRIN [Concomitant]
     Route: 048

REACTIONS (6)
  - Hip arthroplasty [Unknown]
  - Blindness unilateral [Unknown]
  - Fall [Unknown]
  - Concussion [Unknown]
  - Photosensitivity reaction [Unknown]
  - Visual acuity reduced [Unknown]
